FAERS Safety Report 5896178-3 (Version None)
Quarter: 2008Q3

REPORT INFORMATION
  Report Type: 
  Country: None (occurrence: None)
  Receive Date: 20080924
  Receipt Date: 20080117
  Transmission Date: 20090109
  Serious: Yes (Hospitalization)
  Sender: FDA-Public Use
  Company Number: US-ASTRAZENECA-2007UW14240

PATIENT
  Age: 15754 Day
  Sex: Female
  Weight: 94.8 kg

DRUGS (5)
  1. SEROQUEL [Suspect]
     Indication: BIPOLAR DISORDER
     Dosage: 25 MG TO 100 MG
     Route: 048
     Dates: start: 20000718, end: 20050101
  2. ZYPREXA [Concomitant]
  3. LITHIUM CARBONATE [Concomitant]
  4. CLONAZEPAM [Concomitant]
  5. ABILIFY [Concomitant]

REACTIONS (4)
  - BLOOD CHOLESTEROL INCREASED [None]
  - CHEST PAIN [None]
  - DIABETES MELLITUS [None]
  - HYPERTENSION [None]
